FAERS Safety Report 25327063 (Version 1)
Quarter: 2025Q2

REPORT INFORMATION
  Report Type: Spontaneous
  Country: US (occurrence: US)
  Receive Date: 20250517
  Receipt Date: 20250517
  Transmission Date: 20250716
  Serious: No
  Sender: TEVA
  Company Number: US-TEVA-VS-3330618

PATIENT
  Age: 25 Year
  Sex: Male

DRUGS (1)
  1. UZEDY [Suspect]
     Active Substance: RISPERIDONE
     Indication: Schizophrenia
     Route: 065
     Dates: start: 202503

REACTIONS (1)
  - Nodule [Not Recovered/Not Resolved]

NARRATIVE: CASE EVENT DATE: 20250101
